FAERS Safety Report 14997177 (Version 1)
Quarter: 2018Q2

REPORT INFORMATION
  Report Type: Spontaneous
  Country: US (occurrence: US)
  Receive Date: 20180522
  Receipt Date: 20180522
  Transmission Date: 20180711
  Serious: Yes (Disabling)
  Sender: FDA-Public Use
  Company Number: None

PATIENT
  Age: 56 Year
  Sex: Female
  Weight: 71.55 kg

DRUGS (5)
  1. HIGH DOSE VIT C [Concomitant]
  2. NATURAL THYROID [Concomitant]
  3. SUPPLEMENTAL HORMONES [Concomitant]
  4. DIGESTIVE SUPPLEMENTS [Concomitant]
  5. CIPRO [Suspect]
     Active Substance: CIPROFLOXACIN HYDROCHLORIDE
     Indication: URINARY TRACT INFECTION

REACTIONS (13)
  - Dry mouth [None]
  - Pain in jaw [None]
  - Headache [None]
  - Social avoidant behaviour [None]
  - Mobility decreased [None]
  - Ear pain [None]
  - Diarrhoea [None]
  - Paraesthesia [None]
  - Gait disturbance [None]
  - Depression [None]
  - Neuralgia [None]
  - Speech disorder [None]
  - Gastrointestinal disorder [None]

NARRATIVE: CASE EVENT DATE: 20170401
